FAERS Safety Report 5331645-2 (Version None)
Quarter: 2007Q2

REPORT INFORMATION
  Report Type: 
  Country: None (occurrence: None)
  Receive Date: 20070522
  Receipt Date: 20070510
  Transmission Date: 20071010
  Serious: Yes (Hospitalization)
  Sender: FDA-Public Use
  Company Number: FR-PFIZER INC-2007039850

PATIENT
  Age: 14 Year
  Sex: Female

DRUGS (2)
  1. ZARONTIN [Suspect]
     Route: 048
     Dates: start: 20070307, end: 20070312
  2. DEPAKENE [Concomitant]

REACTIONS (2)
  - PYREXIA [None]
  - RASH ERYTHEMATOUS [None]
